FAERS Safety Report 5529469-6 (Version None)
Quarter: 2007Q4

REPORT INFORMATION
  Report Type: 
  Country: None (occurrence: None)
  Receive Date: 20071129
  Receipt Date: 20071115
  Transmission Date: 20080405
  Serious: Yes (Life-Threatening, Hospitalization)
  Sender: FDA-Public Use
  Company Number: GB-RANBAXY-2007RR-08611

PATIENT

DRUGS (2)
  1. LISINOPRIL [Suspect]
     Dosage: 25 MG, QD
     Route: 048
  2. LIGNOCAINE [Suspect]
     Indication: LOCAL ANAESTHESIA
     Route: 061

REACTIONS (8)
  - ANGIOEDEMA [None]
  - APNOEA [None]
  - CONVULSION [None]
  - DRUG HYPERSENSITIVITY [None]
  - HYPOXIA [None]
  - PULSE ABSENT [None]
  - RENAL FAILURE ACUTE [None]
  - SWOLLEN TONGUE [None]
